FAERS Safety Report 9171780 (Version 1)
Quarter: 2013Q1

REPORT INFORMATION
  Report Type: Spontaneous
  Country: MX (occurrence: None)
  Receive Date: 20130318
  Receipt Date: 20130318
  Transmission Date: 20140127
  Serious: Yes (Death)
  Sender: FDA-Public Use
  Company Number: ENTC2013-0089

PATIENT
  Age: 84 Year
  Sex: Female

DRUGS (1)
  1. STALEVO [Suspect]
     Dosage: 2 DF, (50/12.5/200 MG) DAILY (1 DOSAGE FORM,2 IN 1 D), ORAL
     Route: 048

REACTIONS (1)
  - Cardiac arrest [None]
